FAERS Safety Report 7030139-6 (Version None)
Quarter: 2010Q4

REPORT INFORMATION
  Report Type: 
  Country: None (occurrence: None)
  Receive Date: 20101001
  Receipt Date: 20100928
  Transmission Date: 20110411
  Serious: Yes (Other)
  Sender: FDA-Public Use
  Company Number: 2010SP051569

PATIENT
  Age: 92 Year
  Sex: Male

DRUGS (8)
  1. MIRTAZAPINE [Suspect]
     Indication: DEPRESSION
     Dosage: 15 MG;  .PO
     Route: 048
     Dates: start: 20100704, end: 20100706
  2. ZOPICLONE (ZOPICLONE) [Suspect]
     Indication: INSOMNIA
     Dosage: 7.5 MG;
     Dates: start: 20100701, end: 20100703
  3. FLUOXETINE [Concomitant]
  4. ISPAGHULA HUSK [Concomitant]
  5. LANSOPRAZOLE [Concomitant]
  6. LAXIDO [Concomitant]
  7. LEUPRORELIN [Concomitant]
  8. LOFEPRAMINE [Concomitant]

REACTIONS (1)
  - PRIAPISM [None]
